FAERS Safety Report 6553119-3 (Version None)
Quarter: 2010Q1

REPORT INFORMATION
  Report Type: 
  Country: None (occurrence: None)
  Receive Date: 20100127
  Receipt Date: 20090408
  Transmission Date: 20100710
  Serious: No
  Sender: FDA-Public Use
  Company Number: A0765090A

PATIENT
  Age: 48 Year
  Sex: Female

DRUGS (1)
  1. IMITREX [Suspect]
     Indication: MIGRAINE
     Dosage: 6MG AS REQUIRED
     Route: 058
     Dates: start: 20070301

REACTIONS (2)
  - INJECTION SITE PAIN [None]
  - PRODUCT QUALITY ISSUE [None]
